FAERS Safety Report 9883909 (Version 1)
Quarter: 2014Q1

REPORT INFORMATION
  Report Type: Spontaneous
  Country: US (occurrence: US)
  Receive Date: 20140210
  Receipt Date: 20140210
  Transmission Date: 20141002
  Serious: No
  Sender: FDA-Public Use
  Company Number: US-ALLERGAN-1316926US

PATIENT
  Age: 43 Year
  Sex: Female

DRUGS (7)
  1. BOTOX [Suspect]
     Indication: MIGRAINE
  2. SOMA [Concomitant]
     Indication: MUSCLE SPASMS
     Dosage: 350 MG, TID
     Route: 048
  3. CLONAZEPAM [Concomitant]
     Indication: INSOMNIA
     Dosage: 1 MG, QHS
     Route: 048
  4. DEXILANT [Concomitant]
     Indication: GASTROOESOPHAGEAL REFLUX DISEASE
     Dosage: 60 MG, QD
     Route: 048
  5. MELATONIN [Concomitant]
     Indication: SLEEP DISORDER
     Dosage: UNK
     Route: 048
  6. BENADRYL                           /00000402/ [Concomitant]
     Indication: HYPERSENSITIVITY
     Dosage: UNK
     Route: 048
  7. REFRESH TEARS [Concomitant]
     Indication: EYE PAIN
     Dosage: UNK

REACTIONS (5)
  - Pain [Recovered/Resolved]
  - Narrow anterior chamber angle [Unknown]
  - Glaucoma [Unknown]
  - Headache [Recovered/Resolved]
  - Musculoskeletal stiffness [Recovered/Resolved]
